FAERS Safety Report 25890855 (Version 1)
Quarter: 2025Q4

REPORT INFORMATION
  Report Type: Spontaneous
  Country: US (occurrence: US)
  Receive Date: 20251007
  Receipt Date: 20251007
  Transmission Date: 20260117
  Serious: No
  Sender: INTRABIO
  Company Number: US-IBO-202500145

PATIENT
  Age: 29 Year
  Sex: Male
  Weight: 69 kg

DRUGS (3)
  1. AQNEURSA [Suspect]
     Active Substance: LEVACETYLLEUCINE
     Indication: Product used for unknown indication
     Dosage: AQNEURSA 1 GRAM SACHET / TAKE 2 PACKETS IN THE MORNING, 1 PACKET IN THE AFTERNOON, AND 1 PACKET IN T
     Route: 065
     Dates: start: 20241031
  2. MIPLYFFA [Concomitant]
     Active Substance: ARIMOCLOMOL CITRATE
     Indication: Product used for unknown indication
     Route: 065
  3. MIGLUSTAT [Concomitant]
     Active Substance: MIGLUSTAT
     Indication: Product used for unknown indication
     Route: 065

REACTIONS (4)
  - Gait disturbance [Unknown]
  - Amnesia [Unknown]
  - Speech disorder [Unknown]
  - Insomnia [Unknown]
